FAERS Safety Report 7602955-0 (Version None)
Quarter: 2011Q3

REPORT INFORMATION
  Report Type: 
  Country: None (occurrence: None)
  Receive Date: 20110712
  Receipt Date: 20110330
  Transmission Date: 20111222
  Serious: No
  Sender: FDA-Public Use
  Company Number: A0920870A

PATIENT
  Age: 80 Year
  Sex: Male
  Weight: 63.6 kg

DRUGS (3)
  1. JALYN [Suspect]
     Indication: BENIGN PROSTATIC HYPERPLASIA
     Dosage: 1CAP PER DAY
     Route: 048
     Dates: start: 20101230, end: 20110301
  2. UNKNOWN MEDICATION [Concomitant]
     Route: 048
  3. SATOLOL [Concomitant]
     Dosage: .5TAB PER DAY
     Route: 048

REACTIONS (2)
  - PAIN IN EXTREMITY [None]
  - URINE FLOW DECREASED [None]
